FAERS Safety Report 13479384 (Version 3)
Quarter: 2017Q2

REPORT INFORMATION
  Report Type: Report from Study
  Country: US (occurrence: US)
  Receive Date: 20170425
  Receipt Date: 20170504
  Transmission Date: 20170830
  Serious: Yes (Hospitalization, Other)
  Sender: FDA-Public Use
  Company Number: US-SAOL THERAPEUTICS-2017SAO00751

PATIENT
  Age: 49 Year
  Sex: Male
  Weight: 85.71 kg

DRUGS (16)
  1. DILAUDID [Suspect]
     Active Substance: HYDROMORPHONE HYDROCHLORIDE
     Dosage: 0.5499 MG, \DAY
     Route: 037
     Dates: start: 20160427, end: 20160706
  2. COMPOUNDED BACLOFEN [Suspect]
     Active Substance: BACLOFEN
     Dosage: 658.6 ?G, \DAY
     Dates: start: 20160427, end: 20160706
  3. COMPOUNDED BACLOFEN [Suspect]
     Active Substance: BACLOFEN
     Dosage: 390.1 ?G, \DAY
     Route: 037
     Dates: start: 20160706
  4. DILAUDID [Suspect]
     Active Substance: HYDROMORPHONE HYDROCHLORIDE
     Dosage: 0.6502 MG, \DAY
     Route: 037
     Dates: start: 20160706
  5. CLONIDINE. [Suspect]
     Active Substance: CLONIDINE
     Dosage: 52.02 ?G, \DAY
     Route: 037
     Dates: start: 20160706
  6. BUPIVACAINE. [Suspect]
     Active Substance: BUPIVACAINE
     Dosage: 13.172 MG, \DAY
     Route: 037
     Dates: start: 20160427, end: 20160706
  7. CLONIDINE. [Suspect]
     Active Substance: CLONIDINE
     Dosage: 44.00 ?G, \DAY
     Route: 037
     Dates: start: 20160427, end: 20160706
  8. COMPOUNDED BACLOFEN [Suspect]
     Active Substance: BACLOFEN
     Dosage: 330.0 ?G, \DAY
     Route: 037
     Dates: start: 20160427, end: 20160706
  9. COMPOUNDED BACLOFEN [Suspect]
     Active Substance: BACLOFEN
     Dosage: 676.5 ?G, \DAY
     Route: 037
     Dates: start: 20160706
  10. DILAUDID [Suspect]
     Active Substance: HYDROMORPHONE HYDROCHLORIDE
     Dosage: 1.127 MG, \DAY
     Route: 037
     Dates: start: 20160706
  11. BUPIVACAINE. [Suspect]
     Active Substance: BUPIVACAINE
     Dosage: 6.599 MG, \DAY
     Route: 037
     Dates: start: 20160427, end: 20160706
  12. BUPIVACAINE. [Suspect]
     Active Substance: BUPIVACAINE
     Dosage: 7.802 MG, \DAY
     Route: 037
     Dates: start: 20160706
  13. CLONIDINE. [Suspect]
     Active Substance: CLONIDINE
     Dosage: 87.81 ?G, \DAY
     Route: 037
     Dates: start: 20160427, end: 20160706
  14. BUPIVACAINE. [Suspect]
     Active Substance: BUPIVACAINE
     Dosage: 13.530 MG, \DAY
     Route: 037
     Dates: start: 20160706
  15. DILAUDID [Suspect]
     Active Substance: HYDROMORPHONE HYDROCHLORIDE
     Dosage: 1.097 MG, \DAY
     Route: 037
     Dates: start: 20160427, end: 20160706
  16. CLONIDINE. [Suspect]
     Active Substance: CLONIDINE
     Dosage: 90.20 ?G, \DAY
     Route: 037
     Dates: start: 20160706

REACTIONS (2)
  - Device failure [Recovered/Resolved]
  - Neoplasm [Unknown]

NARRATIVE: CASE EVENT DATE: 201607
